FAERS Safety Report 10699450 (Version 1)
Quarter: 2015Q1

REPORT INFORMATION
  Report Type: Spontaneous
  Country: JP (occurrence: JP)
  Receive Date: 20150109
  Receipt Date: 20150109
  Transmission Date: 20150721
  Serious: Yes (Other)
  Sender: FDA-Public Use
  Company Number: JP-ROCHE-1519126

PATIENT
  Age: 73 Year
  Sex: Female

DRUGS (4)
  1. DOCETAXEL. [Concomitant]
     Active Substance: DOCETAXEL
     Indication: BREAST CANCER
     Dosage: DOSAGE IS UNCERTAIN. ?ONE COURSE
     Route: 041
  2. HERCEPTIN [Suspect]
     Active Substance: TRASTUZUMAB
     Indication: BREAST CANCER
     Dosage: DOSAGE IS UNCERTAIN. ?ONE COURSE
     Route: 041
  3. PERJETA [Suspect]
     Active Substance: PERTUZUMAB
     Indication: BREAST CANCER
     Dosage: DOSAGE IS UNCERTAIN. ?ONE COURSE?STRENGTH: 420MG/14ML
     Route: 041
  4. DEXAMETHASONE. [Concomitant]
     Active Substance: DEXAMETHASONE
     Dosage: DOSAGE IS UNCERTAIN.
     Route: 065

REACTIONS (6)
  - Diarrhoea [Unknown]
  - Pruritus [Unknown]
  - Hypoaesthesia [Unknown]
  - Dry skin [Unknown]
  - Hypersensitivity [Unknown]
  - Eczema [Unknown]
